FAERS Safety Report 8133247-1 (Version None)
Quarter: 2012Q1

REPORT INFORMATION
  Report Type: 
  Country: None (occurrence: None)
  Receive Date: 20120213
  Receipt Date: 20120210
  Transmission Date: 20120608
  Serious: Yes (Death)
  Sender: FDA-Public Use
  Company Number: PHHY2012JP003148

PATIENT

DRUGS (4)
  1. ADALAT CC [Concomitant]
     Dosage: 40 MG
     Route: 048
  2. TRICHLORMETHIAZIDE [Concomitant]
     Route: 048
  3. RASILEZ [Suspect]
     Indication: HYPERTENSION
     Dosage: 150 MG, UNK
     Route: 048
  4. PSYCHIATRIC THERAPY [Concomitant]
     Route: 048

REACTIONS (1)
  - COMPLETED SUICIDE [None]
